FAERS Safety Report 15595785 (Version 7)
Quarter: 2019Q3

REPORT INFORMATION
  Report Type: Report from Study
  Country: AT (occurrence: AT)
  Receive Date: 20181107
  Receipt Date: 20190902
  Transmission Date: 20191004
  Serious: Yes (Hospitalization, Other)
  Sender: FDA-Public Use
  Company Number: AT-ROCHE-2200138

PATIENT
  Age: 61 Year
  Sex: Female
  Weight: 80 kg

DRUGS (32)
  1. TRASTUZUMAB. [Suspect]
     Active Substance: TRASTUZUMAB
     Indication: HER-2 POSITIVE BREAST CANCER
     Dosage: MOST RECENT DOSE PRIOR TO THE EVENT WAS RECEIVED ON 04/SEP/2018, 23/OCT/2018, 27/MAY/2019
     Route: 041
     Dates: start: 20170306
  2. TRASTUZUMAB EMTANSINE [Suspect]
     Active Substance: ADO-TRASTUZUMAB EMTANSINE
     Indication: HER-2 POSITIVE BREAST CANCER
     Dosage: ONE DOSE ON 24/APR/2018, MOST RECENT DOSE PRIOR TO THE EVENT: 15/MAY/2018
     Route: 042
     Dates: start: 20171212
  3. LYRICA [Concomitant]
     Active Substance: PREGABALIN
     Indication: BACK PAIN
     Route: 065
     Dates: start: 20181227, end: 20190226
  4. XELODA [Suspect]
     Active Substance: CAPECITABINE
     Dosage: MOST RECENT DOSE:27/MAY/2019
     Route: 048
  5. EMEND [Concomitant]
     Active Substance: APREPITANT
     Route: 065
     Dates: start: 20180129, end: 20181015
  6. SUCRALFAT [Concomitant]
     Active Substance: SUCRALFATE
  7. HYDAL [Concomitant]
     Active Substance: HYDROMORPHONE HYDROCHLORIDE
     Indication: BACK PAIN
     Dosage: ONGOING = CHECKED
     Route: 065
     Dates: start: 20180628, end: 20190226
  8. LIXIANA [Concomitant]
     Active Substance: EDOXABAN TOSYLATE
     Indication: PULMONARY EMBOLISM
     Dosage: ONGOING = CHECKED
     Route: 065
     Dates: start: 20190315
  9. PERTUZUMAB. [Suspect]
     Active Substance: PERTUZUMAB
     Indication: HER-2 POSITIVE BREAST CANCER
     Route: 042
     Dates: start: 20170306, end: 20171121
  10. PASPERTIN [METOCLOPRAMIDE HYDROCHLORIDE] [Concomitant]
     Active Substance: METOCLOPRAMIDE HYDROCHLORIDE
     Dosage: ONGOING = CHECKED
     Route: 065
     Dates: start: 20171212
  11. LAEVOLAC [Concomitant]
     Active Substance: LACTULOSE
     Dosage: ONGOING = CHECKED
     Route: 065
     Dates: start: 20171212
  12. NOVALGIN (METAMIZOLE SODIUM) [Concomitant]
     Active Substance: METAMIZOLE SODIUM
     Indication: HEPATIC PAIN
     Dosage: ONGOING = CHECKED
     Route: 065
     Dates: start: 20170327
  13. MIRTAZAPIN [Concomitant]
     Active Substance: MIRTAZAPINE
     Dosage: ONGOING = CHECKED
     Route: 065
     Dates: start: 20190315
  14. EMEND [Concomitant]
     Active Substance: APREPITANT
     Route: 065
     Dates: start: 20180128, end: 20181014
  15. CONCOR COR [Concomitant]
     Active Substance: BISOPROLOL FUMARATE
  16. XELODA [Suspect]
     Active Substance: CAPECITABINE
     Indication: HER-2 POSITIVE BREAST CANCER
     Dosage: MOST RECENT DOSE:27/MAY/2019
     Route: 048
     Dates: start: 20180904, end: 20180910
  17. TRASTUZUMAB EMTANSINE [Suspect]
     Active Substance: ADO-TRASTUZUMAB EMTANSINE
     Dosage: MOST RECENT DOSE PRIOR TO THE EVENT
     Route: 042
     Dates: start: 20180515
  18. FORTECORTIN [DEXAMETHASONE] [Concomitant]
     Active Substance: DEXAMETHASONE
     Dosage: ONGOING = CHECKED
     Route: 065
     Dates: start: 20190215
  19. ZOLPIDEM [Concomitant]
     Active Substance: ZOLPIDEM TARTRATE
     Dosage: ONGOING = NOT CHECKED
     Route: 065
     Dates: start: 20190215, end: 20190315
  20. TRITTICO [Concomitant]
     Active Substance: TRAZODONE HYDROCHLORIDE
     Route: 065
     Dates: start: 20181215, end: 20190226
  21. TEMESTA [LORAZEPAM] [Concomitant]
     Active Substance: LORAZEPAM
     Dosage: ONGOING = CHECKED
     Route: 065
     Dates: start: 20190226
  22. KYTRIL [Concomitant]
     Active Substance: GRANISETRON HYDROCHLORIDE
     Route: 065
     Dates: start: 20171212, end: 20181013
  23. DEXAMETHASON [DEXAMETHASONE] [Concomitant]
     Active Substance: DEXAMETHASONE
     Route: 065
     Dates: start: 20170829, end: 20181013
  24. NOVALGIN (METAMIZOLE SODIUM) [Concomitant]
     Active Substance: METAMIZOLE SODIUM
     Indication: BACK PAIN
     Dosage: ONGOING = CHECKED
     Route: 065
     Dates: start: 20171212
  25. NOVALGIN (METAMIZOLE SODIUM) [Concomitant]
     Active Substance: METAMIZOLE SODIUM
     Indication: HEPATIC PAIN
     Dosage: ONGOING = CHECKED
     Route: 065
     Dates: start: 20170327
  26. HYDAL [Concomitant]
     Active Substance: HYDROMORPHONE HYDROCHLORIDE
     Route: 065
     Dates: start: 20181227
  27. FORTECORTIN [DEXAMETHASONE] [Concomitant]
     Active Substance: DEXAMETHASONE
     Dosage: ONGOING = NOT CHECKED
     Route: 065
     Dates: start: 20190215, end: 20190215
  28. EMEND [Concomitant]
     Active Substance: APREPITANT
     Route: 065
     Dates: start: 20180127, end: 20181013
  29. NAVELBINE [Suspect]
     Active Substance: VINORELBINE TARTRATE
     Indication: HER-2 POSITIVE BREAST CANCER
     Dosage: ONE DOSE ON 30/MAY/2017, MOST RECENT DOSE PRIOR TO THE EVENT RECEIVED ON 27/JUN/2017
     Route: 048
     Dates: start: 20170306
  30. LASIX [Concomitant]
     Active Substance: FUROSEMIDE
  31. PANTOLOC [PANTOPRAZOLE] [Concomitant]
     Active Substance: PANTOPRAZOLE SODIUM
     Dosage: ONGOING = CHECKED
     Route: 065
     Dates: start: 20170302
  32. DAFLON [DIOSMIN;HESPERIDIN] [Concomitant]
     Dosage: ONGOING = CHECKED
     Route: 065

REACTIONS (8)
  - Polyneuropathy [Not Recovered/Not Resolved]
  - Polyneuropathy [Recovered/Resolved]
  - Blindness [Recovered/Resolved with Sequelae]
  - Headache [Recovered/Resolved]
  - Vertigo [Recovered/Resolved]
  - Angina pectoris [Recovered/Resolved]
  - Vertigo [Not Recovered/Not Resolved]
  - Dyspnoea exertional [Not Recovered/Not Resolved]

NARRATIVE: CASE EVENT DATE: 20180904
